FAERS Safety Report 9780375 (Version 3)
Quarter: 2015Q1

REPORT INFORMATION
  Report Type: Report from Study
  Country: US (occurrence: US)
  Receive Date: 20131224
  Receipt Date: 20150305
  Transmission Date: 20150721
  Serious: Yes (Hospitalization, Other)
  Sender: FDA-Public Use
  Company Number: US-AMGEN-USASP2013089849

PATIENT
  Age: 62 Year
  Sex: Male

DRUGS (1)
  1. ENBREL [Suspect]
     Active Substance: ETANERCEPT
     Indication: ANKYLOSING SPONDYLITIS
     Dosage: 50 MG, QWK
     Route: 058

REACTIONS (9)
  - Sepsis [Unknown]
  - Ankylosing spondylitis [Unknown]
  - Skin cancer [Unknown]
  - Paraesthesia [Unknown]
  - Retinal detachment [Unknown]
  - Intraocular pressure increased [Unknown]
  - Hypoaesthesia [Unknown]
  - Glaucoma [Unknown]
  - Parkinson^s disease [Unknown]
